FAERS Safety Report 4982395-3 (Version None)
Quarter: 2006Q2

REPORT INFORMATION
  Report Type: 
  Country: None (occurrence: None)
  Receive Date: 20060419
  Receipt Date: 20060406
  Transmission Date: 20061013
  Serious: Yes (Other)
  Sender: FDA-Public Use
  Company Number: 2005156374

PATIENT
  Age: 79 Year
  Sex: Male

DRUGS (4)
  1. CELEBREX [Suspect]
     Indication: RHEUMATOID ARTHRITIS
  2. MORPHINE [Suspect]
     Indication: PAIN
  3. ETODOLAC [Suspect]
     Indication: RHEUMATOID ARTHRITIS
     Dates: start: 20050201
  4. TYLENOL [Concomitant]

REACTIONS (4)
  - ASPIRATION JOINT [None]
  - DRUG INTOLERANCE [None]
  - HERNIA REPAIR [None]
  - PAIN [None]
